FAERS Safety Report 4538250-6 (Version None)
Quarter: 2004Q4

REPORT INFORMATION
  Report Type: 
  Country: None (occurrence: None)
  Receive Date: 20041221
  Receipt Date: 20041208
  Transmission Date: 20050328
  Serious: Yes (Hospitalization)
  Sender: FDA-Public Use
  Company Number: 2004CG02289

PATIENT
  Age: 50 Year
  Sex: Male

DRUGS (10)
  1. NEXIUM [Suspect]
     Dates: start: 20040916, end: 20040920
  2. NEXIUM [Suspect]
     Dates: start: 20040924, end: 20041008
  3. MOPRAL [Suspect]
     Dates: start: 20040921, end: 20040923
  4. AUGMENTIN '125' [Suspect]
     Dosage: 6 G DAILY IV
     Route: 042
     Dates: start: 20040915, end: 20040922
  5. CIFLOX [Suspect]
     Dosage: 800 MG DAILY IV
     Route: 042
     Dates: start: 20040923, end: 20041004
  6. AXEPIM [Suspect]
     Dosage: 4 G DAILY IV
     Route: 042
     Dates: start: 20040923, end: 20041004
  7. MIDAZOLAM HCL [Suspect]
     Dates: start: 20040915, end: 20041006
  8. FENTANYL CITRATE [Suspect]
     Dates: start: 20040915, end: 20041005
  9. MUCOMYST [Suspect]
     Dates: start: 20040915, end: 20041008
  10. NIMBEX [Suspect]
     Dates: start: 20040925, end: 20041001

REACTIONS (1)
  - HEPATITIS [None]
